FAERS Safety Report 4937755-3 (Version None)
Quarter: 2006Q1

REPORT INFORMATION
  Report Type: 
  Country: None (occurrence: None)
  Receive Date: 20060309
  Receipt Date: 20060120
  Transmission Date: 20060701
  Serious: Yes (Other)
  Sender: FDA-Public Use
  Company Number: JP-ROCHE-434029

PATIENT
  Age: 14 Year
  Sex: Male

DRUGS (2)
  1. TAMIFLU [Suspect]
     Route: 048
     Dates: start: 20060110, end: 20060110
  2. TOMIRON [Suspect]
     Route: 048
     Dates: start: 20060110, end: 20060110

REACTIONS (2)
  - CONVULSION [None]
  - CRYING [None]
